FAERS Safety Report 19220964 (Version 3)
Quarter: 2021Q4

REPORT INFORMATION
  Report Type: Spontaneous
  Country: IT (occurrence: IT)
  Receive Date: 20210506
  Receipt Date: 20211012
  Transmission Date: 20220303
  Serious: Yes (Hospitalization, Other)
  Sender: FDA-Public Use
  Company Number: NVSC2021IT100842

PATIENT
  Age: 25 Year
  Sex: Female

DRUGS (7)
  1. IBUPROFEN [Suspect]
     Active Substance: IBUPROFEN
     Indication: Skin lesion
     Dosage: 600 MG, BID
     Route: 065
  2. ADALIMUMAB [Suspect]
     Active Substance: ADALIMUMAB
     Indication: Autoimmune thyroiditis
     Dosage: 40 MG (21 DAYS)
     Route: 058
  3. ADALIMUMAB [Suspect]
     Active Substance: ADALIMUMAB
     Indication: Psoriatic arthropathy
  4. PREDNISONE [Suspect]
     Active Substance: PREDNISONE
     Indication: Skin lesion
     Dosage: 50 MG, QD (2 WEEKS A SCALAR)
     Route: 065
  5. PREDNISONE [Suspect]
     Active Substance: PREDNISONE
     Dosage: 5 MG, QD
     Route: 065
  6. PREDNISONE [Suspect]
     Active Substance: PREDNISONE
     Dosage: 2.5 MG, 5QD
     Route: 065
  7. PREDNISONE [Suspect]
     Active Substance: PREDNISONE
     Dosage: 15 MG, QD
     Route: 065

REACTIONS (11)
  - Polyneuropathy [Unknown]
  - Arthralgia [Recovered/Resolved]
  - Muscular weakness [Unknown]
  - Haematuria [Unknown]
  - Neuralgia [Recovering/Resolving]
  - Proteinuria [Recovering/Resolving]
  - Pain [Unknown]
  - Dysaesthesia [Unknown]
  - Oedema peripheral [Unknown]
  - Purpura [Recovered/Resolved]
  - Pneumonia [Unknown]
